FAERS Safety Report 13260294 (Version 1)
Quarter: 2017Q1

REPORT INFORMATION
  Report Type: Report from Study
  Country: DE (occurrence: DE)
  Receive Date: 20170222
  Receipt Date: 20170222
  Transmission Date: 20170428
  Serious: Yes (Other)
  Sender: FDA-Public Use
  Company Number: DE-PFIZER INC-2017070719

PATIENT
  Age: 44 Year
  Sex: Male

DRUGS (2)
  1. MINOXIDIL. [Suspect]
     Active Substance: MINOXIDIL
     Dosage: 30 MG, DAILY
  2. MINOXIDIL. [Suspect]
     Active Substance: MINOXIDIL
     Indication: RENAL HYPERTENSION
     Dosage: 2.5 MG, 3X/DAY

REACTIONS (2)
  - Orthostatic hypotension [Unknown]
  - Angina pectoris [Recovered/Resolved]
